FAERS Safety Report 9314818 (Version 1)
Quarter: 2013Q2

REPORT INFORMATION
  Report Type: Report from Study
  Country: JP (occurrence: JP)
  Receive Date: 20130529
  Receipt Date: 20130529
  Transmission Date: 20140414
  Serious: Yes (Death)
  Sender: FDA-Public Use
  Company Number: JP-PFIZER INC-2013161189

PATIENT
  Age: 46 Year
  Sex: Male
  Weight: 63 kg

DRUGS (14)
  1. SILDENAFIL CITRATE [Suspect]
     Indication: PULMONARY ARTERIAL HYPERTENSION
     Dosage: 20 MG, 2X/DAY
     Route: 048
     Dates: start: 20091009
  2. SILDENAFIL CITRATE [Suspect]
     Indication: COLLAGEN-VASCULAR DISEASE
  3. SELOKEN [Concomitant]
     Dosage: UNK
     Route: 048
     Dates: start: 20090730
  4. PREDONINE [Concomitant]
     Dosage: UNK
     Route: 048
     Dates: start: 20070530
  5. GASMOTIN [Concomitant]
     Dosage: UNK
     Route: 048
     Dates: start: 20070530
  6. TAKEPRON [Concomitant]
     Dosage: UNK
     Route: 048
     Dates: start: 20070530
  7. LIPITOR [Concomitant]
     Dosage: UNK
     Route: 048
     Dates: start: 20070530
  8. BERAPROST SODIUM [Concomitant]
     Dosage: UNK
     Route: 048
     Dates: start: 20090624
  9. ACTONEL [Concomitant]
     Dosage: UNK
     Route: 048
     Dates: start: 20070530
  10. BAKTAR [Concomitant]
     Dosage: UNK
     Route: 048
     Dates: start: 20070530
  11. BROTIZOLAM [Concomitant]
     Dosage: UNK
     Route: 048
     Dates: start: 20090727
  12. TRACLEER [Concomitant]
     Indication: PULMONARY HYPERTENSION
     Dosage: UNK
     Route: 048
     Dates: start: 20090729
  13. WARFARIN [Concomitant]
     Dosage: UNK
     Route: 048
     Dates: start: 20090903
  14. DIART [Concomitant]
     Dosage: UNK
     Route: 048
     Dates: start: 20100119

REACTIONS (1)
  - Death [Fatal]
